FAERS Safety Report 7944494 (Version 4)
Quarter: 2013Q2

REPORT INFORMATION
  Report Type: Report from Study
  Country: CA (occurrence: CA)
  Receive Date: 20110513
  Receipt Date: 20130503
  Transmission Date: 20140414
  Serious: Yes (Hospitalization)
  Sender: FDA-Public Use
  Company Number: CA-ABBOTT-11P-028-0725079-00

PATIENT
  Age: 60 Year
  Sex: Male
  Weight: 72.64 kg

DRUGS (5)
  1. HUMIRA 40 MG/0.8 ML PEN [Suspect]
     Indication: PSORIATIC ARTHROPATHY
     Route: 058
     Dates: start: 20081223, end: 20110412
  2. METFORMIN [Concomitant]
     Indication: DIABETES MELLITUS
  3. SYNTHROID [Concomitant]
     Indication: THYROID DISORDER
     Dates: start: 2009
  4. SYNTHROID [Concomitant]
     Indication: PROPHYLAXIS
  5. PERINDOPRIL [Concomitant]
     Indication: PRODUCT USED FOR UNKNOWN INDICATION
     Dates: start: 2009

REACTIONS (5)
  - Bacterial infection [Recovering/Resolving]
  - Headache [Recovered/Resolved]
  - Pain [Recovered/Resolved]
  - Feeling cold [Recovered/Resolved]
  - Feeling hot [Recovered/Resolved]
